FAERS Safety Report 20775665 (Version 1)
Quarter: 2022Q2

REPORT INFORMATION
  Report Type: Spontaneous
  Country: US (occurrence: None)
  Receive Date: 20220502
  Receipt Date: 20220502
  Transmission Date: 20220721
  Serious: Yes (Hospitalization)
  Sender: FDA-Public Use
  Company Number: None

PATIENT
  Sex: Male

DRUGS (1)
  1. XGEVA [Suspect]
     Active Substance: DENOSUMAB
     Indication: Plasma cell myeloma
     Dosage: OTHER QUANTITY : 120 MG/1.7ML ;?OTHER FREQUENCY : EVERY 28 DAYS?
     Route: 058

REACTIONS (2)
  - Diarrhoea [None]
  - Vomiting [None]
